FAERS Safety Report 10004195 (Version 1)
Quarter: 2014Q1

REPORT INFORMATION
  Report Type: Spontaneous
  Country: IT (occurrence: IT)
  Receive Date: 20140312
  Receipt Date: 20140312
  Transmission Date: 20141002
  Serious: Yes (Hospitalization)
  Sender: FDA-Public Use
  Company Number: IT-ACTAVIS-2013-25207

PATIENT
  Age: 63 Year
  Sex: Male

DRUGS (2)
  1. IRINOTECAN (UNKNOWN) [Suspect]
     Indication: COLORECTAL CANCER METASTATIC
     Dosage: 1 POSOLOGIC UNIT/CYCLIC
     Route: 042
     Dates: start: 20121228, end: 20121228
  2. CETUXIMAB [Suspect]
     Indication: COLORECTAL CANCER METASTATIC
     Dosage: 1 POSOLOGIC UNIT/CYCLIC
     Route: 042
     Dates: start: 20121228, end: 20121228

REACTIONS (3)
  - Abdominal pain upper [Not Recovered/Not Resolved]
  - Diarrhoea [Not Recovered/Not Resolved]
  - Vomiting [Not Recovered/Not Resolved]
